FAERS Safety Report 7976908-7 (Version None)
Quarter: 2011Q4

REPORT INFORMATION
  Report Type: 
  Country: None (occurrence: None)
  Receive Date: 20111213
  Receipt Date: 20111110
  Transmission Date: 20120403
  Serious: Yes (Hospitalization)
  Sender: FDA-Public Use
  Company Number: US-AMGEN-USASP2011059109

PATIENT
  Age: 62 Year
  Sex: Male

DRUGS (1)
  1. ENBREL [Suspect]
     Indication: PSORIATIC ARTHROPATHY
     Dosage: 50 MG, QWK
     Dates: start: 20071012, end: 20110822

REACTIONS (4)
  - SINUSITIS FUNGAL [None]
  - SINUSITIS BACTERIAL [None]
  - PNEUMONIA [None]
  - NASOPHARYNGITIS [None]
